FAERS Safety Report 7251043-4 (Version None)
Quarter: 2011Q1

REPORT INFORMATION
  Report Type: 
  Country: None (occurrence: None)
  Receive Date: 20110128
  Receipt Date: 20110120
  Transmission Date: 20110831
  Serious: Yes (Death, Hospitalization, Other)
  Sender: FDA-Public Use
  Company Number: NL-MPIJNJ-2005-02388

PATIENT

DRUGS (3)
  1. ADRIAMYCIN PFS [Suspect]
     Indication: MULTIPLE MYELOMA
     Dosage: 9.00 MG/M2, UNK
     Route: 042
     Dates: start: 20050805, end: 20050812
  2. DEXAMETHASONE [Suspect]
     Indication: MULTIPLE MYELOMA
     Dosage: 40.00 MG, UNK
     Route: 048
     Dates: start: 20050805, end: 20050903
  3. VELCADE [Suspect]
     Indication: MULTIPLE MYELOMA
     Dosage: 1.30 MG/M2, 2/WEEK
     Route: 042
     Dates: start: 20050805, end: 20050825

REACTIONS (7)
  - GRAFT VERSUS HOST DISEASE [None]
  - SEPSIS [None]
  - EPILEPSY [None]
  - UPPER RESPIRATORY TRACT INFECTION [None]
  - HERPES SIMPLEX [None]
  - PERIPHERAL SENSORY NEUROPATHY [None]
  - GASTROINTESTINAL HAEMORRHAGE [None]
